FAERS Safety Report 7435920-7 (Version None)
Quarter: 2011Q2

REPORT INFORMATION
  Report Type: 
  Country: None (occurrence: None)
  Receive Date: 20110418
  Receipt Date: 20110401
  Transmission Date: 20111010
  Serious: Yes (Congenital Anomaly, Other)
  Sender: FDA-Public Use
  Company Number: 1000013413

PATIENT
  Sex: Female
  Weight: 4.175 kg

DRUGS (14)
  1. DIFENE (DICLOFENAC SODIUM) (DICLOFENAC SODIUM) [Concomitant]
  2. BUSCOPAN (HYOSCINE BUTYLBROMIDE) (TABLETS) (HYOSCINE BUTYLBROMIDE) [Concomitant]
  3. FASTUM (KETOPEROFEN) (GEL) (KETOPEROFEN) [Concomitant]
  4. CYTAMEN (CYANOCOBALAMIN) (INJECTION) (CYANOCOBALAMIN) [Concomitant]
  5. LEXAPRO [Suspect]
     Dosage: 20 MG (20 MG, 1 IN 1 D), TRANSPLACENTAL)
     Route: 064
     Dates: end: 20090401
  6. ZIMOVANE (ZOPICLONE) (TABLETS) (ZOPICLONE) [Concomitant]
  7. SEROQUEL [Suspect]
     Dosage: 200 MG (100 MG, 2 IN 1 D), TRANSPLACENTAL
     Route: 064
     Dates: end: 20090401
  8. GALFER (FERROUS FUMARATE) (FERROUS FUMARATE) [Concomitant]
  9. GERTAC (RANITIDINE) (RANITIDINE) [Concomitant]
  10. AUGMENTIN (AUGMENTIN) (AUGMENTIN) [Concomitant]
  11. SOLPADOL (PARACETAMOL, CODEINE PHOSPHATE) (PARACETAMOL, CODEINE PHOSPH [Concomitant]
  12. AFFEX (FLUOXETINE) (CAPSULES) (FLUOXETINE) [Concomitant]
  13. RANITIDINE [Concomitant]
  14. AMOXIL (AMOXICILLIN) (AMOXICILLIN) [Concomitant]

REACTIONS (7)
  - TALIPES [None]
  - HYPERTONIA NEONATAL [None]
  - POOR SUCKING REFLEX [None]
  - NERVOUS SYSTEM DISORDER [None]
  - FLOPPY INFANT [None]
  - MATERNAL DRUGS AFFECTING FOETUS [None]
  - HYPOTONIA NEONATAL [None]
